FAERS Safety Report 5449953-3 (Version None)
Quarter: 2007Q3

REPORT INFORMATION
  Report Type: 
  Country: None (occurrence: None)
  Receive Date: 20070803
  Receipt Date: 20070430
  Transmission Date: 20080115
  Serious: No
  Sender: FDA-Public Use
  Company Number: 200711075BWH

PATIENT
  Age: 48 Year
  Sex: Male

DRUGS (10)
  1. NEXAVAR [Suspect]
     Indication: RENAL CELL CARCINOMA STAGE IV
     Dosage: 400 MG, BID, ORAL
     Route: 048
     Dates: start: 20070305
  2. DILANTIN [Concomitant]
  3. DECADRON [Concomitant]
  4. MEGACE [Concomitant]
  5. OMNICEF [Concomitant]
  6. NORCO [Concomitant]
  7. LORAZEPAM [Concomitant]
  8. MORPHINE [Concomitant]
  9. BACLOFEN [Concomitant]
  10. PROTONIX [Concomitant]

REACTIONS (3)
  - BACK PAIN [None]
  - BRONCHITIS [None]
  - TACHYCARDIA [None]
